FAERS Safety Report 23986233 (Version 1)
Quarter: 2024Q2

REPORT INFORMATION
  Report Type: Spontaneous
  Country: US (occurrence: US)
  Receive Date: 20240618
  Receipt Date: 20240618
  Transmission Date: 20240716
  Serious: No
  Sender: FDA-Public Use
  Company Number: US-SANOFI-02092064

PATIENT
  Age: 36 Year
  Sex: Female

DRUGS (2)
  1. ADMELOG [Suspect]
     Active Substance: INSULIN LISPRO
     Indication: Diabetes mellitus
     Dosage: 20 TO 30 UNITS, TID; 20 UNITS OF ADMELOG SOLOSTAR IF SHE IS NOT EATING AT ALL AND THEN 30 UNITS BEFO
     Dates: start: 2009
  2. TRULICITY [Concomitant]
     Active Substance: DULAGLUTIDE
     Dosage: UNK

REACTIONS (2)
  - Hypophagia [Unknown]
  - Intentional product use issue [Unknown]
